FAERS Safety Report 7687770-4 (Version None)
Quarter: 2011Q3

REPORT INFORMATION
  Report Type: 
  Country: None (occurrence: None)
  Receive Date: 20110817
  Receipt Date: 20110801
  Transmission Date: 20111222
  Serious: Yes (Death)
  Sender: FDA-Public Use
  Company Number: US-BAYER-201036428NA

PATIENT
  Age: 45 Year
  Sex: Female
  Weight: 81.633 kg

DRUGS (7)
  1. CLARINEX [Concomitant]
  2. CELEBREX [Concomitant]
     Dosage: 200 MG, UNK
  3. DOXYCYCLINE [Concomitant]
     Dosage: 100 MG, UNK
  4. YASMIN [Suspect]
     Indication: ACNE
     Dosage: UNK
     Route: 048
     Dates: start: 20030601, end: 20031101
  5. ORTHO TRI-CYCLEN [Concomitant]
  6. DIOVAN [Concomitant]
  7. NEURONTIN [Concomitant]
     Dosage: 600 MG, UNK

REACTIONS (1)
  - PULMONARY EMBOLISM [None]
